FAERS Safety Report 9119669 (Version 4)
Quarter: 2013Q1

REPORT INFORMATION
  Report Type: Spontaneous
  Country: US (occurrence: US)
  Receive Date: 20130226
  Receipt Date: 20130319
  Transmission Date: 20140127
  Serious: Yes (Other)
  Sender: FDA-Public Use
  Company Number: US-PFIZER INC-2013068213

PATIENT
  Sex: Female

DRUGS (4)
  1. LYRICA [Suspect]
     Indication: COMPLEX REGIONAL PAIN SYNDROME
     Dosage: 75 MG, 1X/DAY (3 OF LYRICA 25 MG)
     Dates: start: 201302
  2. LYRICA [Suspect]
     Indication: NEURALGIA
     Dosage: UNK
  3. PERCOCET [Concomitant]
     Indication: LIGAMENT RUPTURE
     Dosage: UNK
  4. PERCOCET [Concomitant]
     Indication: PAIN

REACTIONS (22)
  - Neuralgia [Unknown]
  - Aphasia [Unknown]
  - Memory impairment [Unknown]
  - Agitation [Unknown]
  - Anxiety [Unknown]
  - Dizziness [Unknown]
  - Somnolence [Unknown]
  - Coordination abnormal [Unknown]
  - Crying [Unknown]
  - Feeling abnormal [Unknown]
  - Hypersomnia [Unknown]
  - Disturbance in attention [Unknown]
  - Headache [Recovering/Resolving]
  - Dyskinesia [Unknown]
  - Emotional disorder [Unknown]
  - Muscle disorder [Unknown]
  - Constipation [Unknown]
  - Thinking abnormal [Unknown]
  - Speech disorder [Unknown]
  - Gait disturbance [Unknown]
  - Dyskinesia [Unknown]
  - Hallucination [Unknown]
